FAERS Safety Report 4984586-4 (Version None)
Quarter: 2006Q2

REPORT INFORMATION
  Report Type: 
  Country: None (occurrence: None)
  Receive Date: 20060426
  Receipt Date: 20060426
  Transmission Date: 20061013
  Serious: Yes (Hospitalization)
  Sender: FDA-Public Use
  Company Number: None

PATIENT
  Age: 71 Year
  Sex: Male
  Weight: 69.4003 kg

DRUGS (7)
  1. TERAZOSIN 2 MG QHS 2/7/06-2/13/06 [Suspect]
     Indication: BENIGN PROSTATIC HYPERPLASIA
     Dosage: 2 MG QHS
     Dates: start: 20060207, end: 20060213
  2. LISINOPRIL [Suspect]
     Indication: HYPERTENSION
     Dosage: 40 MG DAILY
  3. ATENOLOL [Suspect]
     Dosage: 50 MG DAILY
  4. FELODIPINE [Suspect]
     Dosage: 10 MG DAILY
  5. LOVASTATIN [Concomitant]
  6. CLOTRIMAZOLE [Concomitant]
  7. OMEPRAZOLE [Concomitant]

REACTIONS (2)
  - ORTHOSTATIC HYPOTENSION [None]
  - VERTIGO [None]
